FAERS Safety Report 21959755 (Version 2)
Quarter: 2023Q1

REPORT INFORMATION
  Report Type: Spontaneous
  Country: DE (occurrence: DE)
  Receive Date: 20230206
  Receipt Date: 20230327
  Transmission Date: 20230418
  Serious: Yes (Death, Other)
  Sender: FDA-Public Use
  Company Number: DE-BRISTOL-MYERS SQUIBB COMPANY-2023-012129

PATIENT
  Age: 84 Year
  Sex: Male
  Weight: 110 kg

DRUGS (5)
  1. CARBOPLATIN [Suspect]
     Active Substance: CARBOPLATIN
     Indication: Non-small cell lung cancer
     Dosage: 290 MG, QD (DAILY DOSE 290 MG)
     Route: 065
     Dates: start: 20221206
  2. CARBOPLATIN [Suspect]
     Active Substance: CARBOPLATIN
     Dosage: 240 MG
     Route: 065
     Dates: end: 20221228
  3. PEMETREXED [Suspect]
     Active Substance: PEMETREXED
     Indication: Non-small cell lung cancer
     Dosage: 1100 MG, QD (DAILY DOSE 1100 MG)
     Route: 065
     Dates: start: 20221206
  4. PEMETREXED [Suspect]
     Active Substance: PEMETREXED
     Dosage: 850 MG
     Route: 065
     Dates: end: 20221228
  5. NIVOLUMAB [Suspect]
     Active Substance: NIVOLUMAB
     Indication: Non-small cell lung cancer
     Dosage: 360 MG, QD (DAILY DOSE 360 MG)
     Route: 065
     Dates: start: 20221206, end: 20221228

REACTIONS (5)
  - Pancytopenia [Fatal]
  - Sepsis [Fatal]
  - Renal failure [Unknown]
  - Stomatitis [Unknown]
  - Intentional product use issue [Unknown]
